FAERS Safety Report 4404733-2 (Version None)
Quarter: 2004Q3

REPORT INFORMATION
  Report Type: 
  Country: None (occurrence: None)
  Receive Date: 20040722
  Receipt Date: 20040712
  Transmission Date: 20050211
  Serious: Yes (Hospitalization)
  Sender: FDA-Public Use
  Company Number: FR-GLAXOSMITHKLINE-B0338602A

PATIENT
  Age: 76 Year
  Sex: Female

DRUGS (3)
  1. HYCAMTIN [Suspect]
     Indication: OVARIAN CANCER
     Route: 042
     Dates: start: 20040519, end: 20040519
  2. HYTACAND [Concomitant]
     Route: 048
  3. ALDACTAZINE [Concomitant]
     Route: 048

REACTIONS (4)
  - BLOOD CREATININE INCREASED [None]
  - FAECES DISCOLOURED [None]
  - GENERAL PHYSICAL HEALTH DETERIORATION [None]
  - VOMITING [None]
